FAERS Safety Report 4268707-7 (Version None)
Quarter: 2004Q1

REPORT INFORMATION
  Report Type: 
  Country: None (occurrence: None)
  Receive Date: 20040112
  Receipt Date: 20040112
  Transmission Date: 20041129
  Serious: No
  Sender: FDA-Public Use
  Company Number: None

PATIENT
  Age: 13 Year
  Sex: Male
  Weight: 73 kg

DRUGS (2)
  1. ACYCLOVIR SODIUM [Suspect]
     Dosage: 700 G IV Q 8 HOURS
     Dates: start: 20040101
  2. ACYCLOVIR SODIUM [Suspect]

REACTIONS (2)
  - BLISTER [None]
  - INFUSION SITE REACTION [None]
